FAERS Safety Report 18226842 (Version 2)
Quarter: 2020Q4

REPORT INFORMATION
  Report Type: Spontaneous
  Country: US (occurrence: US)
  Receive Date: 20200903
  Receipt Date: 20201001
  Transmission Date: 20210113
  Serious: No
  Sender: FDA-Public Use
  Company Number: US-MYLANLABS-2020M1074326

PATIENT
  Sex: Male

DRUGS (1)
  1. OCTREOTIDE ACETATE INJECTION [Suspect]
     Active Substance: OCTREOTIDE ACETATE
     Indication: PANCREATIC DISORDER
     Dosage: 500 MCG/ML, QD (ONCE DAILY)

REACTIONS (2)
  - Syringe issue [Unknown]
  - Product dose omission issue [Unknown]
